FAERS Safety Report 22536992 (Version 2)
Quarter: 2023Q2

REPORT INFORMATION
  Report Type: Spontaneous
  Country: US (occurrence: US)
  Receive Date: 20230608
  Receipt Date: 20230619
  Transmission Date: 20230721
  Serious: Yes (Life-Threatening, Hospitalization)
  Sender: FDA-Public Use
  Company Number: US-TEVA-2023-US-2893325

PATIENT
  Age: 42 Year
  Sex: Female

DRUGS (1)
  1. FENTANYL [Suspect]
     Active Substance: FENTANYL
     Indication: Opiates
     Route: 065

REACTIONS (4)
  - CHANTER syndrome [Recovered/Resolved]
  - Hydrocephalus [Unknown]
  - Toxicity to various agents [Unknown]
  - Overdose [Unknown]
